FAERS Safety Report 6437219-4 (Version None)
Quarter: 2009Q4

REPORT INFORMATION
  Report Type: 
  Country: None (occurrence: None)
  Receive Date: 20091112
  Receipt Date: 20091005
  Transmission Date: 20100525
  Serious: No
  Sender: FDA-Public Use
  Company Number: A0810381A

PATIENT
  Age: 61 Year
  Sex: Male

DRUGS (7)
  1. TREXIMET [Suspect]
     Indication: MIGRAINE
     Dosage: 1TAB SINGLE DOSE
     Route: 048
     Dates: start: 20090901, end: 20090901
  2. VERAPAMIL [Concomitant]
  3. GABAPENTIN [Concomitant]
  4. BABY ASPIRIN [Concomitant]
  5. FLOMAX [Concomitant]
  6. AVODART [Concomitant]
  7. LIPITOR [Concomitant]

REACTIONS (1)
  - DRUG INEFFECTIVE [None]
